FAERS Safety Report 9759150 (Version 2)
Quarter: 2013Q4

REPORT INFORMATION
  Report Type: Report from Study
  Country: CA (occurrence: CA)
  Receive Date: 20131216
  Receipt Date: 20131216
  Transmission Date: 20140711
  Serious: Yes (Hospitalization)
  Sender: FDA-Public Use
  Company Number: CA-ASTELLAS-2010US003107

PATIENT
  Age: 39 Year
  Sex: Male

DRUGS (6)
  1. TACROLIMUS MR4 CAPSULES [Suspect]
     Indication: RENAL TRANSPLANT
     Dosage: 5 MG, UID/QD
     Route: 048
     Dates: start: 20100427, end: 20100805
  2. TACROLIMUS MR4 CAPSULES [Suspect]
     Dosage: 2.5 MG, UID/QD
     Route: 048
     Dates: start: 20100806, end: 20100911
  3. CELLCEPT [Concomitant]
     Indication: RENAL TRANSPLANT
     Dosage: UNK
     Route: 048
     Dates: start: 20100412
  4. CELLCEPT [Concomitant]
     Dosage: UNK
     Route: 065
     Dates: start: 20100802
  5. PREDNISONE [Concomitant]
     Indication: RENAL TRANSPLANT
     Dosage: UNK
     Route: 048
     Dates: start: 20100412
  6. NIFEDIPINE [Concomitant]
     Indication: HYPERTENSION
     Dosage: UNK
     Route: 048
     Dates: start: 20100625

REACTIONS (3)
  - Nephritis [Recovering/Resolving]
  - Transplant dysfunction [Recovering/Resolving]
  - BK virus infection [Recovering/Resolving]
